FAERS Safety Report 19996841 (Version 1)
Quarter: 2021Q4

REPORT INFORMATION
  Report Type: Report from Study
  Country: IT (occurrence: IT)
  Receive Date: 20211026
  Receipt Date: 20211026
  Transmission Date: 20220303
  Serious: Yes (Hospitalization)
  Sender: FDA-Public Use
  Company Number: None

PATIENT
  Age: 75 Year
  Sex: Female

DRUGS (7)
  1. AMOXICILLIN [Suspect]
     Active Substance: AMOXICILLIN
     Indication: Dental operation
     Dosage: 1 DF
     Route: 048
     Dates: start: 20210709, end: 20210710
  2. CRESTOR [Concomitant]
     Active Substance: ROSUVASTATIN CALCIUM
  3. PLAVIX [Concomitant]
     Active Substance: CLOPIDOGREL BISULFATE
  4. LANSOPRAZOLE [Concomitant]
     Active Substance: LANSOPRAZOLE
  5. BUDESONIDE [Concomitant]
     Active Substance: BUDESONIDE
  6. LEVOTHYROXINE SODIUM [Concomitant]
     Active Substance: LEVOTHYROXINE SODIUM
  7. BISOPROLOL FUMARATE [Concomitant]
     Active Substance: BISOPROLOL FUMARATE

REACTIONS (4)
  - Chest pain [Recovering/Resolving]
  - Diarrhoea [Recovering/Resolving]
  - Hyperhidrosis [Recovering/Resolving]
  - Hypotension [Recovering/Resolving]

NARRATIVE: CASE EVENT DATE: 20210710
